FAERS Safety Report 6940720-8 (Version None)
Quarter: 2010Q3

REPORT INFORMATION
  Report Type: 
  Country: None (occurrence: None)
  Receive Date: 20100825
  Receipt Date: 20100817
  Transmission Date: 20110219
  Serious: Yes (Hospitalization, Other)
  Sender: FDA-Public Use
  Company Number: US-ROCHE-721735

PATIENT
  Sex: Male

DRUGS (1)
  1. PEGASYS [Suspect]
     Route: 065
     Dates: start: 20090701, end: 20100810

REACTIONS (4)
  - BACK PAIN [None]
  - CONVULSION [None]
  - PSYCHOTIC DISORDER [None]
  - THROMBOSIS [None]
